FAERS Safety Report 24269856 (Version 1)
Quarter: 2024Q3

REPORT INFORMATION
  Report Type: Spontaneous
  Country: GB (occurrence: GB)
  Receive Date: 20240830
  Receipt Date: 20240830
  Transmission Date: 20241017
  Serious: Yes (Hospitalization)
  Sender: MYLAN
  Company Number: GB-MYLANLABS-2024M1079476

PATIENT
  Age: 19 Year
  Sex: Male

DRUGS (1)
  1. EVEROLIMUS [Suspect]
     Active Substance: EVEROLIMUS
     Indication: Tuberous sclerosis complex
     Dosage: UNK
     Route: 065

REACTIONS (1)
  - Diabetes mellitus [Recovering/Resolving]
